FAERS Safety Report 6188153-9 (Version None)
Quarter: 2009Q2

REPORT INFORMATION
  Report Type: 
  Country: None (occurrence: None)
  Receive Date: 20090513
  Receipt Date: 20080821
  Transmission Date: 20091009
  Serious: No
  Sender: FDA-Public Use
  Company Number: A0745459A

PATIENT
  Age: 78 Year
  Sex: Female

DRUGS (4)
  1. DYNACIRC CR [Suspect]
     Indication: DRUG USE FOR UNKNOWN INDICATION
     Dosage: 10MG PER DAY
     Route: 048
  2. GLUCOPHAGE [Concomitant]
  3. LOPRESSOR [Concomitant]
  4. BENICAR HCT [Concomitant]

REACTIONS (2)
  - BURNING SENSATION [None]
  - PRURITUS [None]
